FAERS Safety Report 8190254-0 (Version None)
Quarter: 2012Q1

REPORT INFORMATION
  Report Type: 
  Country: None (occurrence: None)
  Receive Date: 20120305
  Receipt Date: 20120221
  Transmission Date: 20120608
  Serious: Yes (Death)
  Sender: FDA-Public Use
  Company Number: JPI-P-019963

PATIENT
  Age: 85 Year
  Sex: Female

DRUGS (2)
  1. SODIUM OXYBATE [Suspect]
     Indication: NARCOLEPSY
     Dosage: 4.5 GM (2.25 GM, 2 IN 1 D) , ORAL 6 GM (3 GM, 2 IN 1 D) , ORAL
     Route: 048
     Dates: start: 20070209
  2. SODIUM OXYBATE [Suspect]
     Indication: NARCOLEPSY
     Dosage: 4.5 GM (2.25 GM, 2 IN 1 D) , ORAL 6 GM (3 GM, 2 IN 1 D) , ORAL
     Route: 048
     Dates: start: 20070101

REACTIONS (1)
  - ABNORMAL DREAMS [None]
